FAERS Safety Report 15542502 (Version 2)
Quarter: 2019Q1

REPORT INFORMATION
  Report Type: Spontaneous
  Country: CA (occurrence: CA)
  Receive Date: 20181023
  Receipt Date: 20190122
  Transmission Date: 20190417
  Serious: Yes (Life-Threatening, Hospitalization, Other)
  Sender: FDA-Public Use
  Company Number: CA-NOVOPROD-627278

PATIENT
  Age: 40 Year
  Sex: Female
  Weight: 150 kg

DRUGS (1)
  1. NIASTASE RT [Suspect]
     Active Substance: COAGULATION FACTOR VIIA RECOMBINANT HUMAN
     Indication: SURGERY
     Dosage: 2G (3 EVERY 1 DAY)
     Route: 042

REACTIONS (2)
  - Off label use [Unknown]
  - Post procedural pulmonary embolism [Unknown]
